FAERS Safety Report 8986950 (Version 1)
Quarter: 2012Q4

REPORT INFORMATION
  Report Type: 
  Country: IT (occurrence: IT)
  Receive Date: 20121226
  Receipt Date: 20121226
  Transmission Date: 20130627
  Serious: Yes (Other)
  Sender: FDA-Public Use
  Company Number: IT-MYLANLABS-2012S1025683

PATIENT
  Age: 76 Year
  Sex: Female

DRUGS (1)
  1. KETOROLAC [Suspect]
     Indication: OSTEOARTHRITIS
     Route: 030

REACTIONS (1)
  - Embolia cutis medicamentosa [Recovered/Resolved with Sequelae]
